FAERS Safety Report 5718421-3 (Version None)
Quarter: 2008Q2

REPORT INFORMATION
  Report Type: 
  Country: None (occurrence: None)
  Receive Date: 20080425
  Receipt Date: 20080418
  Transmission Date: 20081010
  Serious: No
  Sender: FDA-Public Use
  Company Number: US-TYCO HEALTHCARE/MALLINCKRODT-T200800700

PATIENT

DRUGS (1)
  1. SODIUM IODIDE I 131 [Suspect]

REACTIONS (1)
  - TONGUE DISCOLOURATION [None]
